FAERS Safety Report 9637113 (Version 2)
Quarter: 2013Q4

REPORT INFORMATION
  Report Type: Spontaneous
  Country: US (occurrence: US)
  Receive Date: 20131022
  Receipt Date: 20131219
  Transmission Date: 20140711
  Serious: Yes (Other)
  Sender: FDA-Public Use
  Company Number: US-AMGEN-USASP2013073830

PATIENT
  Age: 56 Year
  Sex: Male
  Weight: 106.5 kg

DRUGS (9)
  1. ENBREL [Suspect]
     Indication: RHEUMATOID ARTHRITIS
     Dosage: 50 MG, QWK
     Route: 058
  2. VOTRIENT [Suspect]
     Indication: RENAL CELL CARCINOMA
     Dosage: UNK
     Route: 065
     Dates: start: 201309
  3. AMBIEN [Concomitant]
     Dosage: 10 MG, UNK
  4. LISINOPRIL [Concomitant]
     Dosage: 10 MG, UNK
  5. PRAVASTATIN [Concomitant]
     Dosage: 20 MG, UNK
  6. CARVEDILOL [Concomitant]
     Dosage: 25 MG, UNK
  7. TAMSULOSIN [Concomitant]
     Dosage: 0.4 MG, UNK
  8. MORPHINE SULF [Concomitant]
     Dosage: 60 MG, ER
  9. PERCOCET                           /00867901/ [Concomitant]
     Dosage: UNK 5-325 MG

REACTIONS (2)
  - Renal cell carcinoma [Unknown]
  - Weight decreased [Unknown]
